FAERS Safety Report 9540618 (Version 1)
Quarter: 2013Q3

REPORT INFORMATION
  Report Type: Spontaneous
  Country: CN (occurrence: CN)
  Receive Date: 20130920
  Receipt Date: 20130920
  Transmission Date: 20140515
  Serious: Yes (Other)
  Sender: FDA-Public Use
  Company Number: CN-ABBVIE-13P-035-1149648-00

PATIENT
  Sex: Female

DRUGS (1)
  1. ENANTONE [Suspect]
     Indication: ENDOMETRIOSIS
     Dosage: MONTHLY, POWDER AND SOLVENT FOR SOLUTION FOR INJECTION
     Dates: start: 20130904

REACTIONS (3)
  - Menorrhagia [Unknown]
  - Pain [Unknown]
  - Anxiety [Unknown]
